FAERS Safety Report 5167603-0 (Version None)
Quarter: 2006Q4

REPORT INFORMATION
  Report Type: 
  Country: None (occurrence: None)
  Receive Date: 20060919
  Receipt Date: 20060802
  Transmission Date: 20070319
  Serious: No
  Sender: FDA-Public Use
  Company Number: BDI-008496

PATIENT
  Age: 29 Year
  Sex: Female

DRUGS (9)
  1. MULTIHANCE [Suspect]
     Indication: CONVULSION
     Dosage: 9 ML ONCE IV
     Route: 042
     Dates: start: 20060705, end: 20060705
  2. MULTIHANCE [Suspect]
     Indication: NUCLEAR MAGNETIC RESONANCE IMAGING BRAIN
     Dosage: 9 ML ONCE IV
     Route: 042
     Dates: start: 20060705, end: 20060705
  3. PHENYTOIN SODIUM CAP [Concomitant]
  4. LEVETIRACETAM [Concomitant]
  5. FLUOXETINE [Concomitant]
  6. CLONAZEPAM [Concomitant]
  7. HYDROCODONE BITARTRATE [Concomitant]
  8. PROMETHAZINE [Concomitant]
  9. CETIRIZINE HCL [Concomitant]

REACTIONS (1)
  - ANAPHYLACTOID REACTION [None]
